FAERS Safety Report 24704116 (Version 8)
Quarter: 2025Q1

REPORT INFORMATION
  Report Type: Spontaneous
  Country: CA (occurrence: CA)
  Receive Date: 20241206
  Receipt Date: 20250212
  Transmission Date: 20250408
  Serious: Yes (Hospitalization, Other)
  Sender: PFIZER
  Company Number: CA-PFIZER INC-202400293691

PATIENT
  Age: 49 Year
  Sex: Male
  Weight: 105.3 kg

DRUGS (12)
  1. ZIRABEV [Suspect]
     Active Substance: BEVACIZUMAB-BVZR
     Indication: Oligodendroglioma
     Route: 042
     Dates: start: 20240227, end: 20240430
  2. ZIRABEV [Suspect]
     Active Substance: BEVACIZUMAB-BVZR
     Route: 042
     Dates: start: 20240521
  3. ZIRABEV [Suspect]
     Active Substance: BEVACIZUMAB-BVZR
     Route: 042
     Dates: start: 20240910
  4. ZIRABEV [Suspect]
     Active Substance: BEVACIZUMAB-BVZR
     Route: 042
     Dates: start: 20241030
  5. ZIRABEV [Suspect]
     Active Substance: BEVACIZUMAB-BVZR
     Route: 042
     Dates: start: 20241030
  6. ZIRABEV [Suspect]
     Active Substance: BEVACIZUMAB-BVZR
     Route: 042
     Dates: start: 20241113
  7. ZIRABEV [Suspect]
     Active Substance: BEVACIZUMAB-BVZR
     Route: 042
     Dates: start: 20241113
  8. ZIRABEV [Suspect]
     Active Substance: BEVACIZUMAB-BVZR
     Route: 042
     Dates: start: 20241211
  9. ZIRABEV [Suspect]
     Active Substance: BEVACIZUMAB-BVZR
     Route: 042
     Dates: start: 20241211
  10. ZIRABEV [Suspect]
     Active Substance: BEVACIZUMAB-BVZR
     Route: 042
     Dates: start: 20250124
  11. ZIRABEV [Suspect]
     Active Substance: BEVACIZUMAB-BVZR
     Route: 042
     Dates: start: 20250124
  12. ZIRABEV [Suspect]
     Active Substance: BEVACIZUMAB-BVZR
     Dates: start: 20250124

REACTIONS (7)
  - Pneumonia pseudomonal [Recovered/Resolved]
  - Pulmonary embolism [Recovered/Resolved]
  - Blood pressure decreased [Unknown]
  - Diplopia [Not Recovered/Not Resolved]
  - Asthenia [Not Recovered/Not Resolved]
  - Inappropriate schedule of product administration [Unknown]
  - Product dose omission issue [Unknown]

NARRATIVE: CASE EVENT DATE: 20241030
